FAERS Safety Report 8670741 (Version 3)
Quarter: 2014Q3

REPORT INFORMATION
  Report Type: Spontaneous
  Country: CA (occurrence: CA)
  Receive Date: 20120718
  Receipt Date: 20140820
  Transmission Date: 20150326
  Serious: Yes (Death, Hospitalization)
  Sender: FDA-Public Use
  Company Number: CA-B.I. PHARMACEUTICALS,INC./RIDGEFIELD-2012-CN-01458CN

PATIENT
  Age: 74 Year
  Sex: Male

DRUGS (1)
  1. PRADAXA [Suspect]
     Active Substance: DABIGATRAN ETEXILATE MESYLATE
     Indication: ATRIAL FIBRILLATION
     Dosage: 300 MG
     Route: 065

REACTIONS (2)
  - Aortic aneurysm rupture [Fatal]
  - Hypovolaemic shock [Fatal]

NARRATIVE: CASE EVENT DATE: 20111214
